FAERS Safety Report 7245617-4 (Version None)
Quarter: 2011Q1

REPORT INFORMATION
  Report Type: 
  Country: None (occurrence: None)
  Receive Date: 20110126
  Receipt Date: 20110114
  Transmission Date: 20110831
  Serious: Yes (Hospitalization)
  Sender: FDA-Public Use
  Company Number: PHHY2011IT03233

PATIENT
  Sex: Female

DRUGS (1)
  1. RISPERIDONE [Suspect]

REACTIONS (3)
  - URTICARIA [None]
  - HYPERTRANSAMINASAEMIA [None]
  - LIVER INJURY [None]
